FAERS Safety Report 8977096 (Version 1)
Quarter: 2012Q4

REPORT INFORMATION
  Report Type: 
  Country: TW (occurrence: TW)
  Receive Date: 20121220
  Receipt Date: 20121220
  Transmission Date: 20130627
  Serious: Yes (Hospitalization, Other)
  Sender: FDA-Public Use
  Company Number: TW-RANBAXY-2012R1-63190

PATIENT
  Age: 60 Year
  Sex: Male

DRUGS (1)
  1. FAMOTIDINE [Suspect]
     Indication: PEPTIC ULCER
     Dosage: UNK
     Route: 048

REACTIONS (2)
  - Eosinophilia [Recovered/Resolved]
  - Cerebral infarction [Recovering/Resolving]
